FAERS Safety Report 6786092-3 (Version None)
Quarter: 2010Q2

REPORT INFORMATION
  Report Type: 
  Country: None (occurrence: None)
  Receive Date: 20100623
  Receipt Date: 20100618
  Transmission Date: 20101027
  Serious: Yes (Death)
  Sender: FDA-Public Use
  Company Number: PHHY2009JP23990

PATIENT
  Age: 76 Year
  Sex: Male

DRUGS (2)
  1. NEORAL [Suspect]
     Indication: INTERSTITIAL LUNG DISEASE
     Dosage: 2-3 MG/KG PER DAY
     Route: 048
     Dates: start: 20041001, end: 20081031
  2. PREDNISOLONE [Suspect]
     Indication: INTERSTITIAL LUNG DISEASE
     Dosage: UNK
     Dates: start: 20041001, end: 20081031

REACTIONS (2)
  - LUNG SQUAMOUS CELL CARCINOMA STAGE III [None]
  - NON-SMALL CELL LUNG CANCER [None]
